FAERS Safety Report 9525060 (Version 1)
Quarter: 2013Q1

REPORT INFORMATION
  Report Type: Spontaneous
  Country: US (occurrence: None)
  Receive Date: 20130314
  Receipt Date: 20130314
  Transmission Date: 20140127
  Serious: No
  Sender: FDA-Public Use
  Company Number: 1212USA006334

PATIENT
  Age: 64 Year
  Sex: Male

DRUGS (7)
  1. VICTRELIS (BOCEPREVIR) CAPSULE, 200MG [Suspect]
     Indication: HEPATITIS C
     Dosage: UNK
     Dates: start: 2012
  2. PEGINTRON (PEGINTERFERON ALFA-2B) POWDER FOR INJECTION, 80/0.5 [Suspect]
     Indication: HEPATITIS C
     Dosage: UNK
     Dates: start: 2012
  3. RIBASPHERE (RIBAVIRIN) CAPSULE [Suspect]
     Indication: HEPATITIS C
     Dosage: UNK?
     Dates: start: 2012
  4. LACTULOSE (LACTULOSE) [Concomitant]
  5. DIOVAN (VALSARTAN) [Concomitant]
  6. CETIRIZINE HYDROCHLORIDE (CETIRIZINE HYDROCHLORIDE) [Concomitant]
  7. OMEPRAZOLE (OMEPRAZOLE) [Concomitant]

REACTIONS (2)
  - Weight decreased [None]
  - Decreased appetite [None]
